FAERS Safety Report 10543281 (Version 1)
Quarter: 2014Q4

REPORT INFORMATION
  Report Type: Spontaneous
  Country: US (occurrence: None)
  Receive Date: 20141024
  Receipt Date: 20141024
  Transmission Date: 20150529
  Serious: Yes (Other)
  Sender: FDA-Public Use
  Company Number: None

PATIENT
  Age: 26 Year
  Sex: Female
  Weight: 81.65 kg

DRUGS (1)
  1. AMPHETAMINE SALTS [Suspect]
     Active Substance: AMPHETAMINE ASPARTATE\AMPHETAMINE SULFATE\DEXTROAMPHETAMINE SACCHARATE\DEXTROAMPHETAMINE SULFATE
     Indication: NARCOLEPSY
     Dosage: TAKEN BY MOUTH
     Route: 048
     Dates: start: 20140912, end: 20141023

REACTIONS (17)
  - Product quality issue [None]
  - Sleep paralysis [None]
  - Chills [None]
  - Fatigue [None]
  - Drug withdrawal syndrome [None]
  - Nausea [None]
  - Migraine [None]
  - Palpitations [None]
  - Cataplexy [None]
  - Impaired work ability [None]
  - Narcolepsy [None]
  - Hallucination [None]
  - Dizziness [None]
  - Impaired driving ability [None]
  - Product substitution issue [None]
  - Muscular weakness [None]
  - Hyperhidrosis [None]

NARRATIVE: CASE EVENT DATE: 20140909
